FAERS Safety Report 8076801-8 (Version None)
Quarter: 2012Q1

REPORT INFORMATION
  Report Type: 
  Country: None (occurrence: None)
  Receive Date: 20120127
  Receipt Date: 20120124
  Transmission Date: 20120608
  Serious: Yes (Death, Other)
  Sender: FDA-Public Use
  Company Number: ES-JNJFOC-20111001983

PATIENT
  Age: 51 Year
  Sex: Female

DRUGS (26)
  1. CARBOPLATIN [Suspect]
     Indication: METASTATIC NEOPLASM
     Route: 065
  2. CARBOPLATIN [Suspect]
     Route: 065
  3. GEMCITABINE [Suspect]
     Route: 065
  4. GEMCITABINE [Suspect]
     Route: 065
  5. GEMCITABINE [Suspect]
     Route: 065
  6. VINORELBINE [Suspect]
     Route: 065
  7. DOXORUBICIN HYDROCHLORIDE [Suspect]
     Route: 042
  8. VINORELBINE [Suspect]
     Route: 065
  9. PACLITAXEL [Suspect]
     Indication: METASTATIC NEOPLASM
     Route: 065
  10. PACLITAXEL [Suspect]
     Route: 065
  11. GEMCITABINE [Suspect]
     Indication: METASTATIC NEOPLASM
     Route: 065
  12. DOXORUBICIN HYDROCHLORIDE [Suspect]
     Route: 042
  13. CARBOPLATIN [Suspect]
     Route: 065
  14. CARBOPLATIN [Suspect]
     Route: 065
  15. DOXORUBICIN HYDROCHLORIDE [Suspect]
     Route: 042
  16. CARBOPLATIN [Suspect]
     Route: 065
  17. PACLITAXEL [Suspect]
     Route: 065
  18. PACLITAXEL [Suspect]
     Route: 065
  19. GEMCITABINE [Suspect]
     Route: 065
  20. VINORELBINE [Suspect]
     Route: 065
  21. PACLITAXEL [Suspect]
     Route: 065
  22. VINORELBINE [Suspect]
     Route: 065
  23. DOXORUBICIN HYDROCHLORIDE [Suspect]
     Indication: METASTATIC NEOPLASM
     Route: 042
  24. DOXORUBICIN HYDROCHLORIDE [Suspect]
     Route: 042
  25. VINORELBINE [Suspect]
     Indication: METASTATIC NEOPLASM
     Route: 065
  26. DOXORUBICIN HYDROCHLORIDE [Suspect]
     Route: 042

REACTIONS (1)
  - METASTATIC NEOPLASM [None]
